FAERS Safety Report 16837989 (Version 3)
Quarter: 2020Q4

REPORT INFORMATION
  Report Type: Spontaneous
  Country: US (occurrence: US)
  Receive Date: 20190923
  Receipt Date: 20201113
  Transmission Date: 20210113
  Serious: Yes (Other)
  Sender: FDA-Public Use
  Company Number: US-GILEAD-2019-0429311

PATIENT
  Age: 37 Year
  Sex: Male
  Weight: 104.76 kg

DRUGS (48)
  1. SUSTIVA [Concomitant]
     Active Substance: EFAVIRENZ
  2. ACTOS [Concomitant]
     Active Substance: PIOGLITAZONE HYDROCHLORIDE
  3. ASPIRIN [ACETYLSALICYLIC ACID] [Concomitant]
     Active Substance: ASPIRIN
  4. CALCIUM [Concomitant]
     Active Substance: CALCIUM
  5. VITAMIN D [VITAMIN D NOS] [Concomitant]
     Active Substance: VITAMIN D NOS
  6. ISENTRESS [Concomitant]
     Active Substance: RALTEGRAVIR POTASSIUM
  7. GLUCOPHAGE [Concomitant]
     Active Substance: METFORMIN HYDROCHLORIDE
  8. PRAVACHOL [Concomitant]
     Active Substance: PRAVASTATIN SODIUM
  9. CALCIUM ACETATE. [Concomitant]
     Active Substance: CALCIUM ACETATE
  10. INTELENCE [Concomitant]
     Active Substance: ETRAVIRINE
  11. RETROVIR [Concomitant]
     Active Substance: ZIDOVUDINE
  12. AVANDIA [Concomitant]
     Active Substance: ROSIGLITAZONE MALEATE
  13. BIAXIN [Concomitant]
     Active Substance: CLARITHROMYCIN
  14. ARANESP [Concomitant]
     Active Substance: DARBEPOETIN ALFA
  15. NORVIR [Concomitant]
     Active Substance: RITONAVIR
  16. PREZISTA [Concomitant]
     Active Substance: DARUNAVIR ETHANOLATE
  17. NIASPAN [Concomitant]
     Active Substance: NIACIN
  18. ZETIA [Concomitant]
     Active Substance: EZETIMIBE
  19. SULAR [Concomitant]
     Active Substance: NISOLDIPINE
  20. LIPITOR [Concomitant]
     Active Substance: ATORVASTATIN CALCIUM
  21. CLARITIN ALLERGIC [Concomitant]
     Active Substance: OXYMETAZOLINE HYDROCHLORIDE
  22. VIREAD [Suspect]
     Active Substance: TENOFOVIR DISOPROXIL FUMARATE
     Indication: HIV INFECTION
     Dosage: UNK
     Route: 048
     Dates: start: 200111, end: 20060830
  23. SODIUM BICARBONATE. [Concomitant]
     Active Substance: SODIUM BICARBONATE
  24. RENAGEL [Concomitant]
     Active Substance: SEVELAMER HYDROCHLORIDE
  25. CALCITRIOL. [Concomitant]
     Active Substance: CALCITRIOL
  26. LORATADINE. [Concomitant]
     Active Substance: LORATADINE
  27. LASIX [Concomitant]
     Active Substance: FUROSEMIDE
  28. COMBIVIR [Concomitant]
     Active Substance: LAMIVUDINE\ZIDOVUDINE
  29. EPIVIR [Concomitant]
     Active Substance: LAMIVUDINE
  30. ZIAGEN [Concomitant]
     Active Substance: ABACAVIR SULFATE
  31. TEMAZEPAM. [Concomitant]
     Active Substance: TEMAZEPAM
  32. PANTOPRAZOLE [Concomitant]
     Active Substance: PANTOPRAZOLE
  33. BACTRIM [Concomitant]
     Active Substance: SULFAMETHOXAZOLE\TRIMETHOPRIM
  34. KALETRA [Concomitant]
     Active Substance: LOPINAVIR\RITONAVIR
  35. TIVICAY [Concomitant]
     Active Substance: DOLUTEGRAVIR SODIUM
  36. TRICOR [Concomitant]
     Active Substance: FENOFIBRATE
  37. NEBUPENT [Concomitant]
     Active Substance: PENTAMIDINE ISETHIONATE
  38. INSULIN [Concomitant]
     Active Substance: INSULIN NOS
  39. ALAVERT ALLERGY [Concomitant]
     Active Substance: LORATADINE
  40. ALLOPURINOL. [Concomitant]
     Active Substance: ALLOPURINOL
  41. ZITHROMAX [Concomitant]
     Active Substance: AZITHROMYCIN DIHYDRATE
  42. IRON [Concomitant]
     Active Substance: IRON
  43. INVIRASE [Concomitant]
     Active Substance: SAQUINAVIR MESYLATE
  44. VIRACEPT [Concomitant]
     Active Substance: NELFINAVIR MESYLATE
  45. FLONASE [MOMETASONE FUROATE] [Concomitant]
     Active Substance: MOMETASONE FUROATE
  46. METOPROLOL. [Concomitant]
     Active Substance: METOPROLOL
  47. CRESTOR [Concomitant]
     Active Substance: ROSUVASTATIN CALCIUM
  48. RITONAVIR. [Concomitant]
     Active Substance: RITONAVIR

REACTIONS (15)
  - Pain [Not Recovered/Not Resolved]
  - Renal failure [Not Recovered/Not Resolved]
  - Decreased activity [Not Recovered/Not Resolved]
  - Anhedonia [Not Recovered/Not Resolved]
  - Renal disorder [Unknown]
  - Fatigue [Unknown]
  - Bone density decreased [Not Recovered/Not Resolved]
  - Loss of personal independence in daily activities [Not Recovered/Not Resolved]
  - Anxiety [Not Recovered/Not Resolved]
  - Emotional distress [Not Recovered/Not Resolved]
  - Quality of life decreased [Not Recovered/Not Resolved]
  - Depression [Not Recovered/Not Resolved]
  - End stage renal disease [Not Recovered/Not Resolved]
  - Acute kidney injury [Not Recovered/Not Resolved]
  - Economic problem [Not Recovered/Not Resolved]

NARRATIVE: CASE EVENT DATE: 20051230
